FAERS Safety Report 15676518 (Version 1)
Quarter: 2018Q4

REPORT INFORMATION
  Report Type: Spontaneous
  Country: JP (occurrence: JP)
  Receive Date: 20181130
  Receipt Date: 20181130
  Transmission Date: 20190205
  Serious: No
  Sender: FDA-Public Use
  Company Number: JP-ALLERGAN-1729146US

PATIENT
  Sex: Male

DRUGS (8)
  1. CLONAZEPAM. [Concomitant]
     Active Substance: CLONAZEPAM
     Indication: SUICIDAL IDEATION
     Dosage: UNK
     Route: 065
  2. ASENAPINE MALEATE - BP [Suspect]
     Active Substance: ASENAPINE MALEATE
     Dosage: 15 MG, QD ( 5 MG IN THE MORNING, 10 MG IN THE EVENING)
     Route: 060
  3. ASENAPINE MALEATE - BP [Suspect]
     Active Substance: ASENAPINE MALEATE
     Dosage: 15 MG, UNK
     Route: 060
  4. ASENAPINE MALEATE - BP [Suspect]
     Active Substance: ASENAPINE MALEATE
     Indication: SCHIZOPHRENIA
     Dosage: 5 MG, BID, MORNING AND EVENING
     Route: 060
     Dates: start: 201611
  5. ASENAPINE MALEATE - BP [Suspect]
     Active Substance: ASENAPINE MALEATE
     Indication: BIPOLAR DISORDER
     Dosage: 10 MG, QD AT BEDTIME
     Route: 060
  6. ASENAPINE MALEATE - BP [Suspect]
     Active Substance: ASENAPINE MALEATE
     Dosage: 20 MG, UNK
     Route: 060
  7. LITHIUM CARBONATE. [Concomitant]
     Active Substance: LITHIUM CARBONATE
     Dosage: UNK
     Route: 065
  8. ABILIFY [Concomitant]
     Active Substance: ARIPIPRAZOLE
     Indication: PRODUCT USED FOR UNKNOWN INDICATION
     Dosage: UNK
     Route: 065

REACTIONS (21)
  - Suicidal ideation [Unknown]
  - Drug effect incomplete [Unknown]
  - Incorrect route of product administration [Unknown]
  - Seizure [Unknown]
  - Restless legs syndrome [Unknown]
  - Agitation [Unknown]
  - Head discomfort [Unknown]
  - Irritability [Unknown]
  - Insomnia [Unknown]
  - Night sweats [Unknown]
  - Depression [Recovered/Resolved]
  - Product dose omission [Unknown]
  - Malaise [Unknown]
  - Dyspnoea [Unknown]
  - Throat tightness [Not Recovered/Not Resolved]
  - Sedation [Recovered/Resolved]
  - Hypoaesthesia [Unknown]
  - Extrapyramidal disorder [Not Recovered/Not Resolved]
  - Inappropriate schedule of product administration [Unknown]
  - Depressed level of consciousness [Unknown]
  - Feeling of despair [Unknown]

NARRATIVE: CASE EVENT DATE: 201706
